FAERS Safety Report 8463005-X (Version None)
Quarter: 2012Q2

REPORT INFORMATION
  Report Type: 
  Country: None (occurrence: None)
  Receive Date: 20120625
  Receipt Date: 20120619
  Transmission Date: 20120825
  Serious: Yes (Hospitalization)
  Sender: FDA-Public Use
  Company Number: FR-GLAXOSMITHKLINE-B0809094A

PATIENT
  Sex: Male

DRUGS (10)
  1. ZOPICLONE [Concomitant]
  2. TOBREX [Concomitant]
  3. VENLAFAXINE HCL [Concomitant]
  4. ZOVIRAX [Suspect]
     Indication: HERPES OPHTHALMIC
     Route: 042
     Dates: start: 20120521, end: 20120523
  5. ACETAMINOPHEN [Concomitant]
  6. ZOVIRAX [Concomitant]
     Route: 047
  7. TRIMEPRAZINE TARTRATE [Concomitant]
  8. CELLUVISC [Concomitant]
  9. FUCIDINE CAP [Concomitant]
  10. NEULEPTIL [Concomitant]

REACTIONS (1)
  - RENAL FAILURE ACUTE [None]
